FAERS Safety Report 6827088-2 (Version None)
Quarter: 2010Q3

REPORT INFORMATION
  Report Type: 
  Country: None (occurrence: None)
  Receive Date: 20100709
  Receipt Date: 20100630
  Transmission Date: 20110219
  Serious: Yes (Life-Threatening, Other)
  Sender: FDA-Public Use
  Company Number: GB-JNJFOC-20100701000

PATIENT
  Sex: Male
  Weight: 115 kg

DRUGS (1)
  1. REOPRO [Suspect]
     Indication: ACUTE MYOCARDIAL INFARCTION
     Route: 040

REACTIONS (2)
  - CORONARY ARTERY THROMBOSIS [None]
  - UNDERDOSE [None]
